FAERS Safety Report 9163411 (Version 1)
Quarter: 2013Q1

REPORT INFORMATION
  Report Type: Spontaneous
  Country: US (occurrence: None)
  Receive Date: 20130226
  Receipt Date: 20130226
  Transmission Date: 20140127
  Serious: Yes (Other)
  Sender: FDA-Public Use
  Company Number: 2013-03116

PATIENT
  Age: 55 Year
  Sex: Female

DRUGS (10)
  1. MORPHINE SULFATE [Suspect]
     Indication: BACK PAIN
     Dosage: Q6H
  2. OXYCODONE HYDROCHLORIDE [Suspect]
     Dosage: Q8H
  3. CYCLOBENZAPRINE HYDROCHLORIDE [Suspect]
     Dosage: Q8H
  4. LEVOTHYROXINE SODIUM [Suspect]
  5. LEVOTHYROXINE SODIUM [Suspect]
  6. SERTRALINE (SERTRALINE) (SERTRALINE) [Concomitant]
  7. METOPROLOL (METOPROLOL) [Concomitant]
  8. LORATIDINE [Concomitant]
  9. FLUTICASONE [Concomitant]
  10. ALPRAZOLAM (ALPRAZOLAM) [Concomitant]

REACTIONS (6)
  - Pain [None]
  - Drug effect decreased [None]
  - Blood thyroid stimulating hormone increased [None]
  - Sedation [None]
  - Drug ineffective [None]
  - Drug interaction [None]
